FAERS Safety Report 18514056 (Version 1)
Quarter: 2020Q4

REPORT INFORMATION
  Report Type: Spontaneous
  Country: US (occurrence: US)
  Receive Date: 20201117
  Receipt Date: 20201117
  Transmission Date: 20210114
  Serious: No
  Sender: FDA-Public Use
  Company Number: US-NALPROPION PHARMACEUTICALS INC.-2019-008664

PATIENT
  Age: 52 Year
  Sex: Female
  Weight: 101.13 kg

DRUGS (1)
  1. CONTRAVE [Suspect]
     Active Substance: BUPROPION HYDROCHLORIDE\NALTREXONE HYDROCHLORIDE
     Indication: WEIGHT CONTROL
     Dosage: ONE TABLET DAILY
     Route: 048
     Dates: start: 201909

REACTIONS (3)
  - Parosmia [Not Recovered/Not Resolved]
  - Intentional underdose [Unknown]
  - Drug titration error [Unknown]

NARRATIVE: CASE EVENT DATE: 201909
